FAERS Safety Report 12755901 (Version 3)
Quarter: 2021Q2

REPORT INFORMATION
  Report Type: Spontaneous
  Country: CA (occurrence: CA)
  Receive Date: 20160916
  Receipt Date: 20210409
  Transmission Date: 20210716
  Serious: Yes (Other)
  Sender: FDA-Public Use
  Company Number: CA-009507513-1609CAN006532

PATIENT
  Age: 53 Year
  Sex: Female

DRUGS (2)
  1. ISENTRESS [Suspect]
     Active Substance: RALTEGRAVIR POTASSIUM
     Indication: PROPHYLAXIS AGAINST HIV INFECTION
     Dosage: 400 MG, 2 EVERY 1 DAY
     Route: 048
     Dates: start: 20160123, end: 20160124
  2. TRUVADA [Suspect]
     Active Substance: EMTRICITABINE\TENOFOVIR DISOPROXIL FUMARATE
     Indication: PROPHYLAXIS AGAINST HIV INFECTION
     Dosage: 1 DOSAGE FORM, 1 EVERY 1 DAY
     Route: 048
     Dates: start: 20160123, end: 20160124

REACTIONS (4)
  - Erythema [Recovered/Resolved]
  - Swelling [Recovered/Resolved]
  - Angioedema [Recovered/Resolved]
  - Paraesthesia [Recovered/Resolved]
